FAERS Safety Report 9354143 (Version 2)
Quarter: 2013Q3

REPORT INFORMATION
  Report Type: Spontaneous
  Country: US (occurrence: US)
  Receive Date: 20130618
  Receipt Date: 20130820
  Transmission Date: 20140515
  Serious: Yes (Other)
  Sender: FDA-Public Use
  Company Number: US-GLAXOSMITHKLINE-A1027296A

PATIENT
  Age: 60 Year
  Sex: Female

DRUGS (6)
  1. IMITREX [Suspect]
     Indication: MIGRAINE
  2. RELPAX [Suspect]
     Indication: MIGRAINE
     Dosage: 40MG AS REQUIRED
  3. CODEINE [Suspect]
     Indication: MIGRAINE
  4. PERCOCET [Suspect]
     Indication: MIGRAINE
  5. LEVOTHYROXINE [Concomitant]
     Indication: HYPOTHYROIDISM
     Dosage: 88MCG PER DAY
  6. UNKNOWN MEDICATION [Concomitant]
     Indication: BACK PAIN

REACTIONS (9)
  - Road traffic accident [Unknown]
  - Spinal fracture [Recovered/Resolved]
  - Sternal fracture [Unknown]
  - Spinal disorder [Unknown]
  - Intervertebral disc protrusion [Unknown]
  - Weight increased [Unknown]
  - Migraine [Unknown]
  - Drug ineffective [Unknown]
  - Blood cholesterol increased [Unknown]
